FAERS Safety Report 4310278-0 (Version None)
Quarter: 2004Q1

REPORT INFORMATION
  Report Type: 
  Country: None (occurrence: None)
  Receive Date: 20040303
  Receipt Date: 20030526
  Transmission Date: 20041129
  Serious: Yes (Hospitalization)
  Sender: FDA-Public Use
  Company Number: FR-BRISTOL-MYERS SQUIBB COMPANY-12286571

PATIENT
  Age: 61 Year
  Sex: Female

DRUGS (8)
  1. GLUCOPHAGE [Suspect]
     Indication: DIABETES MELLITUS
     Route: 048
     Dates: start: 20030213, end: 20030217
  2. AMAREL [Suspect]
     Route: 048
     Dates: start: 20030213, end: 20030217
  3. MOPRAL [Suspect]
     Dates: start: 20030212
  4. LOVENOX [Suspect]
     Dates: start: 20030212
  5. ACUPAN [Suspect]
     Dates: start: 20030213
  6. PROFENID [Suspect]
     Dates: start: 20030211
  7. TOPALGIC [Suspect]
     Dates: start: 20030211, end: 20030211
  8. LOXEN [Concomitant]

REACTIONS (1)
  - HEPATITIS C [None]
